FAERS Safety Report 23417043 (Version 2)
Quarter: 2024Q1

REPORT INFORMATION
  Report Type: Report from Study
  Country: US (occurrence: US)
  Receive Date: 20240118
  Receipt Date: 20240306
  Transmission Date: 20240410
  Serious: Yes (Other)
  Sender: FDA-Public Use
  Company Number: US-ABBVIE-5593864

PATIENT
  Sex: Female

DRUGS (2)
  1. VENCLEXTA [Suspect]
     Active Substance: VENETOCLAX
     Indication: Chronic lymphocytic leukaemia
     Route: 048
     Dates: start: 20230921
  2. VENCLEXTA [Suspect]
     Active Substance: VENETOCLAX
     Indication: Chronic lymphocytic leukaemia
     Dosage: DOSE DECREASED
     Route: 048

REACTIONS (8)
  - Skin cancer [Unknown]
  - Fatigue [Unknown]
  - Dry skin [Unknown]
  - Rash [Unknown]
  - Erythema [Unknown]
  - Peripheral swelling [Unknown]
  - Pain in extremity [Unknown]
  - Sensitive skin [Unknown]
